FAERS Safety Report 5337765-0 (Version None)
Quarter: 2007Q2

REPORT INFORMATION
  Report Type: 
  Country: None (occurrence: None)
  Receive Date: 20070308
  Receipt Date: 20061227
  Transmission Date: 20071010
  Serious: No
  Sender: FDA-Public Use
  Company Number: 2006-BP-15037BP

PATIENT
  Age: 62 Year
  Sex: Female

DRUGS (11)
  1. SPIRIVA [Suspect]
     Indication: CHRONIC OBSTRUCTIVE PULMONARY DISEASE
     Dosage: (18 MCG, QD), IH
     Route: 055
     Dates: start: 20061101
  2. ZYRTEC [Concomitant]
  3. METOPROLOL SUCCINATE [Concomitant]
  4. CELEBREX [Concomitant]
  5. FLONASE [Concomitant]
  6. SINGULAIR [Concomitant]
  7. ZOCOR [Concomitant]
  8. VICODIN [Concomitant]
  9. ALBUTEROL [Concomitant]
  10. NEXIUM [Concomitant]
  11. LISINOPRIL [Concomitant]

REACTIONS (2)
  - URTICARIA [None]
  - VISUAL DISTURBANCE [None]
